FAERS Safety Report 15405153 (Version 1)
Quarter: 2018Q3

REPORT INFORMATION
  Report Type: Spontaneous
  Country: IN (occurrence: IN)
  Receive Date: 20180920
  Receipt Date: 20180920
  Transmission Date: 20181010
  Serious: Yes (Other)
  Sender: FDA-Public Use
  Company Number: IN-LUPIN LIMITED-2017-05749

PATIENT
  Age: 26 Year
  Sex: Female

DRUGS (1)
  1. MISOPROSTOL. [Suspect]
     Active Substance: MISOPROSTOL
     Indication: ABORTION INDUCED
     Dosage: 200 MCG (AT 4?HOUR INTERVALS)
     Route: 067

REACTIONS (2)
  - Uterine cervical laceration [Recovered/Resolved]
  - Cervix haemorrhage uterine [Recovered/Resolved]
